FAERS Safety Report 5611004-5 (Version None)
Quarter: 2008Q1

REPORT INFORMATION
  Report Type: 
  Country: None (occurrence: None)
  Receive Date: 20080201
  Receipt Date: 20080129
  Transmission Date: 20080703
  Serious: Yes (Hospitalization)
  Sender: FDA-Public Use
  Company Number: A0706930A

PATIENT
  Age: 88 Year
  Sex: Female

DRUGS (5)
  1. VENTOLIN [Suspect]
     Indication: CHRONIC OBSTRUCTIVE PULMONARY DISEASE
     Dosage: 2PUFF FOUR TIMES PER DAY
     Route: 055
  2. FLOVENT [Suspect]
     Indication: CHRONIC OBSTRUCTIVE PULMONARY DISEASE
     Dosage: 1PUFF TWICE PER DAY
     Route: 055
  3. ATROVENT [Suspect]
  4. BETA BLOCKER [Concomitant]
  5. UNKNOWN DIURETIC [Concomitant]

REACTIONS (17)
  - ADVERSE EVENT [None]
  - ASTHENIA [None]
  - CARDIAC DISORDER [None]
  - CARDIAC PACEMAKER INSERTION [None]
  - DEPRESSED LEVEL OF CONSCIOUSNESS [None]
  - DRUG ADMINISTRATION ERROR [None]
  - DYSPNOEA [None]
  - EYE SWELLING [None]
  - MEDICATION ERROR [None]
  - MOBILITY DECREASED [None]
  - MYOCARDIAL INFARCTION [None]
  - ORAL PRURITUS [None]
  - PULMONARY OEDEMA [None]
  - RESPIRATORY RATE INCREASED [None]
  - TREMOR [None]
  - URTICARIA [None]
  - WHEEZING [None]
